FAERS Safety Report 14339623 (Version 1)
Quarter: 2017Q4

REPORT INFORMATION
  Report Type: Spontaneous
  Country: GB (occurrence: GB)
  Receive Date: 20171230
  Receipt Date: 20171230
  Transmission Date: 20180321
  Serious: Yes (Life-Threatening, Hospitalization, Other)
  Sender: FDA-Public Use
  Company Number: GB-AUROBINDO-AUR-APL-2017-48320

PATIENT
  Age: 36 Year
  Sex: Female

DRUGS (11)
  1. CALCICHEW D3 FORTE [Concomitant]
     Active Substance: CALCIUM\CHOLECALCIFEROL
     Indication: PRODUCT USED FOR UNKNOWN INDICATION
     Dosage: 2 DF, 1X/DAY IN THE MORNING
     Route: 048
  2. GABAPENTIN. [Suspect]
     Active Substance: GABAPENTIN
     Indication: EPILEPSY
     Dosage: 3600 MG, UNK
     Dates: start: 2010
  3. EPANUTIN                           /00017401/ [Suspect]
     Active Substance: PHENYTOIN
     Indication: FIBROMYALGIA
     Dosage: ()
  4. SIMVASTATIN. [Concomitant]
     Active Substance: SIMVASTATIN
     Indication: PRODUCT USED FOR UNKNOWN INDICATION
     Dosage: 10 MG, 10 MG, 1X/DAY AT NIGHT
     Route: 065
  5. CITALOPRAM [Concomitant]
     Active Substance: CITALOPRAM HYDROBROMIDE
     Indication: PRODUCT USED FOR UNKNOWN INDICATION
     Dosage: 20 MG, ONCE A DAY  IN THE MORNING
     Route: 048
  6. BISMUTH SUBSALICYLATE. [Concomitant]
     Active Substance: BISMUTH SUBSALICYLATE
     Indication: PRODUCT USED FOR UNKNOWN INDICATION
     Dosage: 262.5 MG, UNK
     Route: 065
  7. AMITRIPTYLINE [Concomitant]
     Active Substance: AMITRIPTYLINE
     Indication: PRODUCT USED FOR UNKNOWN INDICATION
     Dosage: 10 MG, 1X/DAY IN THE EVENING
     Route: 048
  8. GABAPENTIN. [Suspect]
     Active Substance: GABAPENTIN
     Indication: FIBROMYALGIA
     Dosage: 600 MG, 3 TIMES A DAY
     Dates: end: 20120419
  9. BACLOFEN. [Suspect]
     Active Substance: BACLOFEN
     Indication: FIBROMYALGIA
     Dosage: 10 MG, 1X/DAY AT NIGHT
     Route: 065
     Dates: start: 201203, end: 20120419
  10. EPANUTIN                           /00017401/ [Suspect]
     Active Substance: PHENYTOIN
     Indication: EPILEPSY
     Dosage: 200 MG, 3 TIMES A DAY
     Dates: start: 201203, end: 20120419
  11. CITALOPRAM [Concomitant]
     Active Substance: CITALOPRAM HYDROBROMIDE
     Dosage: 10 MG, ONCE A DAY
     Route: 048

REACTIONS (40)
  - Nausea [Unknown]
  - Swelling [Recovered/Resolved]
  - Pain in extremity [Not Recovered/Not Resolved]
  - Periorbital oedema [Unknown]
  - Peripheral swelling [Unknown]
  - Visual impairment [Unknown]
  - Parvovirus B19 infection [Unknown]
  - Social avoidant behaviour [Unknown]
  - Paraesthesia [Unknown]
  - Rash [Recovered/Resolved]
  - Eyelid pain [Unknown]
  - Pruritus [Unknown]
  - Dyskinesia [Unknown]
  - Weight decreased [Unknown]
  - Burning sensation [Not Recovered/Not Resolved]
  - Diarrhoea [Unknown]
  - Back pain [Unknown]
  - Pyrexia [Unknown]
  - Hyperaesthesia [Unknown]
  - Asthenia [Unknown]
  - Nightmare [Unknown]
  - Furuncle [Unknown]
  - Angioedema [Unknown]
  - Neck pain [Unknown]
  - Papule [Unknown]
  - Gait disturbance [Unknown]
  - Neuropathy peripheral [Not Recovered/Not Resolved]
  - Sputum discoloured [Unknown]
  - Nerve injury [Unknown]
  - Rash pruritic [Unknown]
  - Pain [Unknown]
  - Grip strength decreased [Unknown]
  - Skin exfoliation [Unknown]
  - Muscular weakness [Unknown]
  - Swelling face [Unknown]
  - Feeling abnormal [Unknown]
  - Skin reaction [Unknown]
  - Hypoaesthesia [Unknown]
  - Vomiting [Unknown]
  - Cough [Unknown]

NARRATIVE: CASE EVENT DATE: 2012
